FAERS Safety Report 10008956 (Version 2)
Quarter: 2014Q1

REPORT INFORMATION
  Report Type: Spontaneous
  Country: BG (occurrence: BG)
  Receive Date: 20140313
  Receipt Date: 20140313
  Transmission Date: 20141002
  Serious: Yes (Hospitalization)
  Sender: FDA-Public Use
  Company Number: BG-ASTRAZENECA-2014SE12184

PATIENT
  Age: 51 Year
  Sex: Male

DRUGS (4)
  1. BRILIQUE [Suspect]
     Indication: ACUTE MYOCARDIAL INFARCTION
     Route: 048
     Dates: start: 20140217, end: 20140219
  2. ASPIRIN [Concomitant]
     Indication: ACUTE MYOCARDIAL INFARCTION
     Dates: start: 20140217
  3. ARIXTRA [Concomitant]
     Indication: ACUTE MYOCARDIAL INFARCTION
     Route: 058
     Dates: start: 20140217, end: 20140218
  4. INSULIN [Concomitant]
     Indication: TYPE 1 DIABETES MELLITUS

REACTIONS (4)
  - Angina pectoris [Unknown]
  - Diabetes mellitus inadequate control [Unknown]
  - Wound haemorrhage [Recovered/Resolved]
  - Therapy cessation [Unknown]
